FAERS Safety Report 4897101-0 (Version None)
Quarter: 2006Q1

REPORT INFORMATION
  Report Type: 
  Country: None (occurrence: None)
  Receive Date: 20060127
  Receipt Date: 20050512
  Transmission Date: 20060701
  Serious: Yes (Death, Life-Threatening, Hospitalization)
  Sender: FDA-Public Use
  Company Number: 212717

PATIENT
  Age: 56 Year
  Sex: Male

DRUGS (9)
  1. MABTHERA(RITUXIMAB) CONC FOR SOLUTION FOR INFUSION [Suspect]
     Indication: NON-HODGKIN'S LYMPHOMA
     Dosage: 500 MG, 1/WEEK, INTRAVENOUS
     Route: 042
     Dates: start: 20040401, end: 20040701
  2. MABTHERA(RITUXIMAB) CONC FOR SOLUTION FOR INFUSION [Suspect]
     Indication: NON-HODGKIN'S LYMPHOMA
     Dosage: 500 MG, 1/WEEK, INTRAVENOUS
     Route: 042
     Dates: start: 20040902, end: 20040909
  3. ZEVALIN [Suspect]
     Indication: NON-HODGKIN'S LYMPHOMA
     Dosage: 1200 MBQ, SINGLE, INTRAVENOUS
     Route: 042
     Dates: start: 20040909, end: 20040909
  4. YTRACIS(YTTRIUM-90) [Suspect]
     Indication: NON-HODGKIN'S LYMPHOMA
     Dosage: 1200 MBQ, SINGLE, INTRAVENOUS
     Route: 042
     Dates: start: 20040909, end: 20040909
  5. FILGRASTIM (FILGRASTIM) [Concomitant]
  6. CEFTRIAXONE (CEFTRIAXONE SODIUM) [Concomitant]
  7. CLINDAMYCIN HYDROCHLORIDE [Concomitant]
  8. LEVOFLOXACIN [Concomitant]
  9. FLUCONAZOLE [Concomitant]

REACTIONS (7)
  - INTERVERTEBRAL DISC PROTRUSION [None]
  - MALIGNANT NEOPLASM PROGRESSION [None]
  - MULTI-ORGAN FAILURE [None]
  - NON-HODGKIN'S LYMPHOMA [None]
  - PANCYTOPENIA [None]
  - RENAL FAILURE [None]
  - SEPSIS [None]
